FAERS Safety Report 18820504 (Version 1)
Quarter: 2021Q1

REPORT INFORMATION
  Report Type: Report from Study
  Country: EG (occurrence: EG)
  Receive Date: 20210202
  Receipt Date: 20210202
  Transmission Date: 20210419
  Serious: Yes (Other)
  Sender: FDA-Public Use
  Company Number: EG-ACCORD-216144

PATIENT
  Age: 23 Year
  Sex: Female

DRUGS (1)
  1. TOPIRAMATE. [Suspect]
     Active Substance: TOPIRAMATE
     Indication: PRODUCT USED FOR UNKNOWN INDICATION
     Route: 048

REACTIONS (3)
  - Myopia [Recovered/Resolved]
  - Angle closure glaucoma [Recovered/Resolved]
  - Idiosyncratic drug reaction [Recovered/Resolved]
